FAERS Safety Report 6409228-2 (Version None)
Quarter: 2009Q4

REPORT INFORMATION
  Report Type: 
  Country: None (occurrence: None)
  Receive Date: 20091021
  Receipt Date: 20091015
  Transmission Date: 20100525
  Serious: Yes (Other)
  Sender: FDA-Public Use
  Company Number: FR-WYE-G01815808

PATIENT
  Age: 39 Year
  Sex: Female

DRUGS (2)
  1. EFFEXOR [Suspect]
     Dosage: 150 MG TOTAL DAILY
     Route: 048
     Dates: end: 20070701
  2. EFFEXOR [Suspect]
     Route: 048
     Dates: start: 20070701

REACTIONS (4)
  - CONGESTIVE CARDIOMYOPATHY [None]
  - LEFT VENTRICULAR FAILURE [None]
  - MITRAL VALVE INCOMPETENCE [None]
  - VENTRICULAR HYPOKINESIA [None]
